FAERS Safety Report 4845149-4 (Version None)
Quarter: 2005Q4

REPORT INFORMATION
  Report Type: 
  Country: None (occurrence: None)
  Receive Date: 20051205
  Receipt Date: 20051124
  Transmission Date: 20060501
  Serious: Yes (Life-Threatening)
  Sender: FDA-Public Use
  Company Number: JP-ROCHE-426370

PATIENT
  Age: 14 Year
  Sex: Female

DRUGS (7)
  1. TAMIFLU [Suspect]
     Route: 048
     Dates: start: 20050228, end: 20050301
  2. CLARITHROMYCIN [Concomitant]
     Route: 048
  3. ASVERIN [Concomitant]
     Dosage: FORM = ORAL FORMULATION (NOT OTHERWISE SPECIFIED)
     Route: 048
  4. AZULENE [Concomitant]
     Dosage: REPORTED AS HACHIAZULE DOSE FORM = GARGLE
     Route: 002
  5. UNSPECIFIED DRUG [Concomitant]
     Dosage: DRUG REPORTED AS TROCHES FORM = LOZENGE ROUTE = OROPHARINGEAL
     Route: 050
  6. CALONAL [Concomitant]
     Route: 048
  7. PL [Concomitant]
     Route: 048

REACTIONS (2)
  - DELIRIUM [None]
  - SUICIDE ATTEMPT [None]
